FAERS Safety Report 10780464 (Version 1)
Quarter: 2015Q1

REPORT INFORMATION
  Report Type: Spontaneous
  Country: US (occurrence: US)
  Receive Date: 20150210
  Receipt Date: 20150210
  Transmission Date: 20150721
  Serious: No
  Sender: FDA-Public Use
  Company Number: US-GLAXOSMITHKLINE-A1084992A

PATIENT

DRUGS (4)
  1. CALCIUM WITH VITAMIN D [Concomitant]
     Active Substance: CALCIUM\VITAMIN D
  2. TAMOXIFEN [Concomitant]
     Active Substance: TAMOXIFEN
  3. HERCEPTIN [Concomitant]
     Active Substance: TRASTUZUMAB
  4. TYKERB [Suspect]
     Active Substance: LAPATINIB DITOSYLATE
     Indication: BREAST CANCER
     Route: 048
     Dates: start: 20131002, end: 20140121

REACTIONS (1)
  - Adverse event [Unknown]
